FAERS Safety Report 18265411 (Version 1)
Quarter: 2020Q3

REPORT INFORMATION
  Report Type: Other
  Country: US (occurrence: US)
  Receive Date: 20200914
  Receipt Date: 20200914
  Transmission Date: 20201103
  Serious: No
  Sender: FDA-Public Use
  Company Number: US-LEADIANT BIOSCIENCES INC-2020STPI000151

PATIENT
  Sex: Male

DRUGS (5)
  1. TRILEPTAL [Concomitant]
     Active Substance: OXCARBAZEPINE
  2. KEPPRA [Concomitant]
     Active Substance: LEVETIRACETAM
  3. MATULANE [Suspect]
     Active Substance: PROCARBAZINE HYDROCHLORIDE
     Indication: BRAIN NEOPLASM MALIGNANT
     Dosage: 100MG/150MG ON DAYS 16 THROUGH 21, ON DAYS 8 THROUGH 15.
     Route: 048
     Dates: start: 20200110
  4. GLEOSTINE [Concomitant]
     Active Substance: LOMUSTINE
  5. VIMPAT [Concomitant]
     Active Substance: LACOSAMIDE

REACTIONS (4)
  - Speech disorder [Unknown]
  - Dizziness [Unknown]
  - Constipation [Unknown]
  - Fatigue [Unknown]
